FAERS Safety Report 21122247 (Version 2)
Quarter: 2022Q3

REPORT INFORMATION
  Report Type: Spontaneous
  Country: CN (occurrence: None)
  Receive Date: 20220722
  Receipt Date: 20220804
  Transmission Date: 20221026
  Serious: Yes (Other)
  Sender: FDA-Public Use
  Company Number: CN-ROCHE-3145033

PATIENT
  Age: 51 Year
  Sex: Male

DRUGS (13)
  1. TECENTRIQ [Suspect]
     Active Substance: ATEZOLIZUMAB
     Indication: Small cell lung cancer
     Route: 065
     Dates: start: 202004
  2. ETOPOSIDE [Concomitant]
     Active Substance: ETOPOSIDE
     Indication: Small cell lung cancer
     Dosage: D1-D5, TREATMENT ON 04-MAY-2018, 04-JUN-2018
  3. ETOPOSIDE [Concomitant]
     Active Substance: ETOPOSIDE
     Dosage: D1-D5
     Dates: end: 20181003
  4. ETOPOSIDE [Concomitant]
     Active Substance: ETOPOSIDE
     Dosage: D1-3
     Dates: start: 202004
  5. ETOPOSIDE [Concomitant]
     Active Substance: ETOPOSIDE
     Dosage: 4 CYCLE
     Route: 048
  6. CISPLATIN [Concomitant]
     Active Substance: CISPLATIN
     Indication: Small cell lung cancer
     Dosage: D1-3, TREATMENT ON 04-MAY-2018, 04-JUN-2018
  7. CISPLATIN [Concomitant]
     Active Substance: CISPLATIN
     Dosage: D1-3
     Dates: end: 20181003
  8. CISPLATIN [Concomitant]
     Active Substance: CISPLATIN
     Dosage: D2-4, TREATMENT ON 14-MAR-2019, 16-MAY-2019
  9. CISPLATIN [Concomitant]
     Active Substance: CISPLATIN
     Dosage: D1-3
     Dates: start: 202004
  10. IRINOTECAN [Concomitant]
     Active Substance: IRINOTECAN
     Indication: Small cell lung cancer
     Dosage: 120MG D1, 80MG D8, TREATMENT ON 14-MAR-2019, 16-MAY-2019
  11. CATEQUENTINIB [Concomitant]
     Active Substance: CATEQUENTINIB
     Indication: Small cell lung cancer
     Dosage: D1-14
     Route: 048
     Dates: start: 20190318
  12. CATEQUENTINIB [Concomitant]
     Active Substance: CATEQUENTINIB
  13. CATEQUENTINIB [Concomitant]
     Active Substance: CATEQUENTINIB
     Route: 048

REACTIONS (1)
  - Myelosuppression [Unknown]

NARRATIVE: CASE EVENT DATE: 20201223
